FAERS Safety Report 5532989-1 (Version None)
Quarter: 2007Q4

REPORT INFORMATION
  Report Type: 
  Country: None (occurrence: None)
  Receive Date: 20071128
  Receipt Date: 20071118
  Transmission Date: 20080405
  Serious: Yes (Other)
  Sender: FDA-Public Use
  Company Number: CHPA2007US12383

PATIENT
  Sex: Female

DRUGS (2)
  1. TRIAMINIC UNKNOWN (NCH)(UNKNOWN) SYRUP [Suspect]
  2. DIMETAPP [Suspect]

REACTIONS (1)
  - CONVULSION [None]
